FAERS Safety Report 9647691 (Version 2)
Quarter: 2013Q4

REPORT INFORMATION
  Report Type: Spontaneous
  Country: GB (occurrence: GB)
  Receive Date: 20131028
  Receipt Date: 20131028
  Transmission Date: 20140711
  Serious: Yes (Other)
  Sender: FDA-Public Use
  Company Number: GB-JNJFOC-20131004075

PATIENT
  Age: 73 Year
  Sex: Female
  Weight: 91 kg

DRUGS (2)
  1. XARELTO [Suspect]
     Indication: CEREBROVASCULAR ACCIDENT PROPHYLAXIS
     Route: 048
  2. XARELTO [Suspect]
     Indication: ATRIAL FIBRILLATION
     Route: 048

REACTIONS (7)
  - Drug hypersensitivity [Unknown]
  - Mobility decreased [Recovered/Resolved]
  - Dyspnoea [Recovered/Resolved]
  - Panic attack [Recovered/Resolved]
  - Muscle spasms [Recovered/Resolved]
  - Myalgia [Unknown]
  - Arthralgia [Unknown]
